FAERS Safety Report 10549046 (Version 1)
Quarter: 2014Q4

REPORT INFORMATION
  Report Type: Spontaneous
  Country: US (occurrence: None)
  Receive Date: 20141027
  Receipt Date: 20141027
  Transmission Date: 20150529
  Serious: Yes (Other)
  Sender: FDA-Public Use
  Company Number: None

PATIENT
  Age: 10 Year
  Sex: Male
  Weight: 90.72 kg

DRUGS (1)
  1. FOCALIN XR [Suspect]
     Active Substance: DEXMETHYLPHENIDATE HYDROCHLORIDE
     Indication: ATTENTION DEFICIT/HYPERACTIVITY DISORDER
     Dosage: 1 EVERY AM/  1/2 AT 3PM  QD ORAL
     Route: 048

REACTIONS (3)
  - Tic [None]
  - Eye movement disorder [None]
  - Oculogyric crisis [None]

NARRATIVE: CASE EVENT DATE: 20140820
